FAERS Safety Report 15670483 (Version 1)
Quarter: 2018Q4

REPORT INFORMATION
  Report Type: Spontaneous
  Country: JP (occurrence: JP)
  Receive Date: 20181129
  Receipt Date: 20181129
  Transmission Date: 20190205
  Serious: Yes (Life-Threatening, Other)
  Sender: FDA-Public Use
  Company Number: JP-PFIZER INC-2018487295

PATIENT
  Age: 70 Year
  Sex: Female
  Weight: 60 kg

DRUGS (10)
  1. CEPHALEXINE [Suspect]
     Active Substance: CEPHALEXIN
     Dosage: 1 DF, 4X/DAY (1 TABLET EACH AFTER EVERY MEAL AND BEFORE MEAL)
     Dates: start: 20181001
  2. URSODEOXYCHOLIC ACID [Suspect]
     Active Substance: URSODIOL
     Dosage: 1 DF, 1X/DAY (1 TABLET AFTER BREAKFAST)
     Route: 048
     Dates: start: 20180921
  3. OLMESARTAN [Concomitant]
     Active Substance: OLMESARTAN
     Dosage: 10 MG, 1X/DAY (AFTER BREAKFAST)
     Route: 048
     Dates: start: 20181016
  4. ASTOMIN [Suspect]
     Active Substance: DIMEMORFAN
     Dosage: 1 DF, 3X/DAY (1 TABLET EACH AFTER EVERY MEAL)
     Dates: start: 20181001
  5. OLMESARTAN [Concomitant]
     Active Substance: OLMESARTAN
     Dosage: 10 MG, 1X/DAY (AFTER BREAKFAST)
     Route: 048
     Dates: start: 20181007
  6. NEXIUM [Suspect]
     Active Substance: ESOMEPRAZOLE MAGNESIUM
     Dosage: 1 DF, 1X/DAY ( 1 CAPSULE AFTER BREAKFAST)
     Route: 048
     Dates: start: 20180907
  7. OLMESARTAN [Concomitant]
     Active Substance: OLMESARTAN
     Dosage: 20 MG, 1X/DAY (AFTER BREAKFAST)
     Route: 048
     Dates: start: 20181009
  8. INLYTA [Suspect]
     Active Substance: AXITINIB
     Indication: RENAL CELL CARCINOMA
     Dosage: 5 MG, 2X/DAY
     Route: 048
     Dates: start: 20180907, end: 20181005
  9. TRANSAMIN [Suspect]
     Active Substance: TRANEXAMIC ACID
     Dosage: 1 DF, 3X/DAY (1 TABLET EACH AFTER EVERY MEAL)
     Dates: start: 20181001
  10. OLMESARTAN [Concomitant]
     Active Substance: OLMESARTAN
     Dosage: 10 MG, 1X/DAY
     Route: 048
     Dates: end: 20181018

REACTIONS (5)
  - Cerebral haemorrhage [Recovered/Resolved with Sequelae]
  - Blood pressure increased [Unknown]
  - Oropharyngeal pain [Unknown]
  - Transaminases abnormal [Unknown]
  - Cystitis [Recovered/Resolved]

NARRATIVE: CASE EVENT DATE: 20181001
